FAERS Safety Report 14511637 (Version 2)
Quarter: 2018Q1

REPORT INFORMATION
  Report Type: Report from Study
  Country: US (occurrence: US)
  Receive Date: 20180209
  Receipt Date: 20180308
  Transmission Date: 20180509
  Serious: Yes (Other)
  Sender: FDA-Public Use
  Company Number: US-GILEAD-2017-0295282

PATIENT
  Age: 77 Year
  Sex: Male

DRUGS (1)
  1. IDELALISIB [Suspect]
     Active Substance: IDELALISIB
     Indication: B-CELL LYMPHOMA
     Dosage: 150 MG, BID
     Route: 048
     Dates: start: 20170208

REACTIONS (7)
  - Radiotherapy [Recovered/Resolved]
  - Chills [Recovering/Resolving]
  - Diarrhoea [Unknown]
  - Gastrointestinal disorder [Not Recovered/Not Resolved]
  - Pyrexia [Recovering/Resolving]
  - B-cell lymphoma [Unknown]
  - Neck mass [Unknown]

NARRATIVE: CASE EVENT DATE: 20180301
